FAERS Safety Report 6355284-X (Version None)
Quarter: 2009Q3

REPORT INFORMATION
  Report Type: 
  Country: None (occurrence: None)
  Receive Date: 20090914
  Receipt Date: 20090901
  Transmission Date: 20100115
  Serious: Yes (Death, Hospitalization, Other)
  Sender: FDA-Public Use
  Company Number: US-PFIZER INC-2009235377

PATIENT
  Sex: Male
  Weight: 67.12 kg

DRUGS (1)
  1. REVATIO [Suspect]
     Indication: PULMONARY HYPERTENSION
     Dosage: 20 MG, 3X/DAY
     Dates: start: 20080725

REACTIONS (15)
  - AORTIC ANEURYSM [None]
  - ARTERIOSCLEROSIS CORONARY ARTERY [None]
  - BLOOD PRESSURE ABNORMAL [None]
  - COLON GANGRENE [None]
  - DEATH [None]
  - HYPOTENSION [None]
  - MESENTERIC OCCLUSION [None]
  - PERIPHERAL ARTERY ANEURYSM [None]
  - PNEUMATOSIS INTESTINALIS [None]
  - PNEUMONIA [None]
  - PNEUMOTHORAX [None]
  - PYREXIA [None]
  - RESPIRATORY FAILURE [None]
  - TACHYCARDIA [None]
  - WHITE BLOOD CELL COUNT INCREASED [None]
